FAERS Safety Report 6032032-4 (Version None)
Quarter: 2009Q1

REPORT INFORMATION
  Report Type: 
  Country: None (occurrence: None)
  Receive Date: 20090108
  Receipt Date: 20090102
  Transmission Date: 20090719
  Serious: Yes (Other)
  Sender: FDA-Public Use
  Company Number: JP-ALLERGAN-0816495US

PATIENT
  Sex: Female

DRUGS (4)
  1. ALESION TABLET [Suspect]
     Indication: PUSTULAR PSORIASIS
     Dosage: 10 MG, QD
     Route: 048
     Dates: start: 20081009, end: 20081208
  2. ALESION TABLET [Suspect]
     Dosage: 20 MG, QD
     Route: 048
     Dates: start: 20080501, end: 20081008
  3. BONALFA [Concomitant]
     Indication: PUSTULAR PSORIASIS
     Route: 062
  4. DERMOVATE [Concomitant]
     Indication: PUSTULAR PSORIASIS
     Route: 062

REACTIONS (1)
  - HEPATIC FUNCTION ABNORMAL [None]
